FAERS Safety Report 25976653 (Version 1)
Quarter: 2025Q4

REPORT INFORMATION
  Report Type: Spontaneous
  Country: EU (occurrence: EU)
  Receive Date: 20251029
  Receipt Date: 20251029
  Transmission Date: 20260118
  Serious: Yes (Other)
  Sender: ANI
  Company Number: EU-ANIPHARMA-2025-FR-000134

PATIENT
  Age: 34 Year
  Sex: Male

DRUGS (2)
  1. CANDESARTAN CILEXETIL [Suspect]
     Active Substance: CANDESARTAN CILEXETIL
     Indication: Migraine
     Dosage: 8 MILLIGRAM, QD
     Route: 048
     Dates: start: 202102, end: 20250915
  2. TOPIRAMATE [Suspect]
     Active Substance: TOPIRAMATE

REACTIONS (2)
  - Enteritis [Unknown]
  - Off label use [Recovered/Resolved]
